FAERS Safety Report 6662940-2 (Version None)
Quarter: 2010Q2

REPORT INFORMATION
  Report Type: 
  Country: None (occurrence: None)
  Receive Date: 20100401
  Receipt Date: 20090818
  Transmission Date: 20101027
  Serious: Yes (Life-Threatening, Hospitalization)
  Sender: FDA-Public Use
  Company Number: CZ-WYE-H10578009

PATIENT
  Age: 74 Year
  Sex: Female

DRUGS (3)
  1. IBUPROFEN [Suspect]
     Indication: ARTHRALGIA
     Dosage: SEVERAL TABLETS
     Route: 048
  2. WARFARIN SODIUM [Suspect]
     Indication: ATRIAL FIBRILLATION
     Dosage: UNKNOWN
     Route: 048
  3. WARFARIN SODIUM [Suspect]
     Indication: MYOCARDIAL ISCHAEMIA

REACTIONS (13)
  - ACUTE MYOCARDIAL INFARCTION [None]
  - ANAEMIA [None]
  - ANURIA [None]
  - CONJUNCTIVAL PALLOR [None]
  - DIARRHOEA [None]
  - FAECES DISCOLOURED [None]
  - GASTROENTERITIS [None]
  - HAEMOGLOBIN DECREASED [None]
  - HYPERHIDROSIS [None]
  - OVERDOSE [None]
  - SHOCK HAEMORRHAGIC [None]
  - SYNCOPE [None]
  - VITAMIN K DECREASED [None]
